FAERS Safety Report 8017060-1 (Version None)
Quarter: 2012Q1

REPORT INFORMATION
  Report Type: 
  Country: None (occurrence: None)
  Receive Date: 20120102
  Receipt Date: 20111229
  Transmission Date: 20120608
  Serious: Yes (Hospitalization)
  Sender: FDA-Public Use
  Company Number: PHEH2011US012746

PATIENT
  Sex: Female

DRUGS (2)
  1. TOBI [Suspect]
     Dosage: 300 MG, BID
  2. CAYSTON [Concomitant]

REACTIONS (2)
  - CYSTIC FIBROSIS [None]
  - DISEASE COMPLICATION [None]
